FAERS Safety Report 6271106-X (Version None)
Quarter: 2009Q3

REPORT INFORMATION
  Report Type: 
  Country: None (occurrence: None)
  Receive Date: 20090716
  Receipt Date: 20090427
  Transmission Date: 20100115
  Serious: No
  Sender: FDA-Public Use
  Company Number: US-TYCO HEALTHCARE/MALLINCKRODT-T200900931

PATIENT
  Sex: Female

DRUGS (3)
  1. OXYCODONE HCL AND ACETAMINOPHEN [Suspect]
     Indication: PAIN
     Dosage: 1 TABLET Q 4-6 HRS PRN
     Route: 048
     Dates: start: 20000101, end: 20090415
  2. OXYCODONE HCL AND ACETAMINOPHEN [Suspect]
     Indication: OSTEOARTHRITIS
  3. OXYCODONE HCL AND ACETAMINOPHEN [Suspect]
     Indication: INTERVERTEBRAL DISC DISORDER

REACTIONS (2)
  - ELECTROCARDIOGRAM CHANGE [None]
  - WITHDRAWAL SYNDROME [None]
